FAERS Safety Report 18303984 (Version 1)
Quarter: 2020Q3

REPORT INFORMATION
  Report Type: Report from Study
  Country: CL (occurrence: CL)
  Receive Date: 20200923
  Receipt Date: 20200923
  Transmission Date: 20201103
  Serious: Yes (Hospitalization)
  Sender: FDA-Public Use
  Company Number: CL-JNJFOC-20200932727

PATIENT
  Age: 22 Year
  Sex: Female

DRUGS (1)
  1. VENTAVIS [Suspect]
     Active Substance: ILOPROST
     Indication: PULMONARY HYPERTENSION
     Route: 055
     Dates: start: 20200907

REACTIONS (2)
  - Nasal discomfort [Not Recovered/Not Resolved]
  - Drug administered in wrong device [Unknown]

NARRATIVE: CASE EVENT DATE: 20200910
